FAERS Safety Report 21179437 (Version 3)
Quarter: 2022Q3

REPORT INFORMATION
  Report Type: Spontaneous
  Country: US (occurrence: US)
  Receive Date: 20220805
  Receipt Date: 20220921
  Transmission Date: 20221027
  Serious: No
  Sender: FDA-Public Use
  Company Number: US-BoehringerIngelheim-2022-BI-185709

PATIENT
  Sex: Female

DRUGS (1)
  1. SPIRIVA HANDIHALER [Suspect]
     Active Substance: TIOTROPIUM BROMIDE MONOHYDRATE
     Indication: Chronic obstructive pulmonary disease
     Dosage: 2 INHALATIONS, EXPIRATION DATE: 4MAR2023
     Route: 055
     Dates: start: 202204

REACTIONS (3)
  - Extra dose administered [Unknown]
  - Product packaging quantity issue [Unknown]
  - Product quality issue [Unknown]
